FAERS Safety Report 8134717-2 (Version None)
Quarter: 2012Q1

REPORT INFORMATION
  Report Type: 
  Country: None (occurrence: None)
  Receive Date: 20120214
  Receipt Date: 20120206
  Transmission Date: 20120608
  Serious: Yes (Death)
  Sender: FDA-Public Use
  Company Number: FR-ASTELLAS-2012EU000864

PATIENT
  Age: 73 Year
  Sex: Female
  Weight: 50 kg

DRUGS (1)
  1. MICAFUNGIN INJECTION [Suspect]
     Indication: CANDIDIASIS
     Dosage: 100 MG, UID/QD
     Route: 042
     Dates: end: 20110831

REACTIONS (4)
  - MYOCARDIAL INFARCTION [None]
  - SEPTIC SHOCK [None]
  - CONDUCTION DISORDER [None]
  - RENAL FAILURE ACUTE [None]
